APPROVED DRUG PRODUCT: METHYLPHENIDATE HYDROCHLORIDE
Active Ingredient: METHYLPHENIDATE HYDROCHLORIDE
Strength: 10MG/5ML
Dosage Form/Route: SOLUTION;ORAL
Application: A091601 | Product #002 | TE Code: AA
Applicant: TRIS PHARMA INC
Approved: Jul 23, 2010 | RLD: No | RS: No | Type: RX